FAERS Safety Report 15548894 (Version 2)
Quarter: 2018Q4

REPORT INFORMATION
  Report Type: Spontaneous
  Country: CZ (occurrence: CZ)
  Receive Date: 20181025
  Receipt Date: 20181114
  Transmission Date: 20190205
  Serious: Yes (Other)
  Sender: FDA-Public Use
  Company Number: CZ-ASTRAZENECA-2018SF39337

PATIENT
  Age: 24580 Day
  Sex: Male
  Weight: 112 kg

DRUGS (1)
  1. IMFINZI [Suspect]
     Active Substance: DURVALUMAB
     Indication: NON-SMALL CELL LUNG CANCER STAGE IIIB
     Dosage: 10.0MG/KG UNKNOWN
     Route: 042
     Dates: end: 20181004

REACTIONS (1)
  - Radiation pneumonitis [Unknown]

NARRATIVE: CASE EVENT DATE: 20181018
